FAERS Safety Report 11661895 (Version 1)
Quarter: 2015Q4

REPORT INFORMATION
  Report Type: Spontaneous
  Country: US (occurrence: US)
  Receive Date: 20151026
  Receipt Date: 20151026
  Transmission Date: 20160304
  Serious: Yes (Other)
  Sender: FDA-Public Use
  Company Number: US-SUNOVION-2015SUN000597

PATIENT
  Sex: Female

DRUGS (5)
  1. ABILIFY [Concomitant]
     Active Substance: ARIPIPRAZOLE
     Dosage: UNK
  2. LITHIUM. [Concomitant]
     Active Substance: LITHIUM
     Dosage: UNK
  3. LATUDA [Suspect]
     Active Substance: LURASIDONE HYDROCHLORIDE
     Dosage: 40 MG, UNK
     Route: 048
  4. ZYPREXA [Concomitant]
     Active Substance: OLANZAPINE
     Dosage: UNK
  5. DEPAKOTE [Concomitant]
     Active Substance: DIVALPROEX SODIUM
     Dosage: UNK

REACTIONS (6)
  - Hypoaesthesia [Unknown]
  - Gait disturbance [Unknown]
  - Haematemesis [Unknown]
  - Headache [Unknown]
  - Transient ischaemic attack [Unknown]
  - Dysphagia [Unknown]
